FAERS Safety Report 22168650 (Version 1)
Quarter: 2023Q2

REPORT INFORMATION
  Report Type: Spontaneous
  Country: CN (occurrence: CN)
  Receive Date: 20230403
  Receipt Date: 20230403
  Transmission Date: 20230722
  Serious: Yes (Hospitalization)
  Sender: FDA-Public Use
  Company Number: CN-Merck Healthcare KGaA-9392449

PATIENT
  Age: 52 Year
  Sex: Male
  Weight: 61 kg

DRUGS (4)
  1. ERBITUX [Suspect]
     Active Substance: CETUXIMAB
     Indication: Colon cancer
     Dosage: .8 G, UNK
     Route: 041
     Dates: start: 20230222, end: 20230222
  2. IRINOTECAN HYDROCHLORIDE [Suspect]
     Active Substance: IRINOTECAN HYDROCHLORIDE
     Indication: Colon cancer
     Dosage: 180 MG, DAILY
     Route: 041
     Dates: start: 20230223, end: 20230223
  3. FLUOROURACIL [Suspect]
     Active Substance: FLUOROURACIL
     Indication: Colon cancer
     Dosage: .5 G, DAILY
     Route: 042
     Dates: start: 20230223, end: 20230223
  4. FLUOROURACIL [Suspect]
     Active Substance: FLUOROURACIL
     Dosage: 2.5 G, QOD (PUMP INJECTION  )
     Route: 065
     Dates: start: 20230223, end: 20230224

REACTIONS (1)
  - Neutrophil count decreased [Recovering/Resolving]

NARRATIVE: CASE EVENT DATE: 20230314
